FAERS Safety Report 6287758-4 (Version None)
Quarter: 2009Q3

REPORT INFORMATION
  Report Type: 
  Country: None (occurrence: None)
  Receive Date: 20090727
  Receipt Date: 20090727
  Transmission Date: 20100115
  Serious: Yes (Other)
  Sender: FDA-Public Use
  Company Number: None

PATIENT
  Sex: Female
  Weight: 69.8539 kg

DRUGS (2)
  1. TRAZODONE HCL [Suspect]
     Indication: INSOMNIA
     Dosage: 2 TABLETS AT BEDTIME 2 AT BEDTIME PO
     Route: 048
     Dates: start: 20090608, end: 20090610
  2. SERTRALINE [Suspect]
     Indication: DEPRESSION
     Dosage: 100MG 1X A DAY PO
     Route: 048
     Dates: start: 20090611, end: 20090621

REACTIONS (5)
  - ANGER [None]
  - DRUG INEFFECTIVE [None]
  - INFLUENZA LIKE ILLNESS [None]
  - PRODUCT SUBSTITUTION ISSUE [None]
  - WITHDRAWAL SYNDROME [None]
